FAERS Safety Report 18039754 (Version 2)
Quarter: 2020Q3

REPORT INFORMATION
  Report Type: Spontaneous
  Country: US (occurrence: US)
  Receive Date: 20200717
  Receipt Date: 20200813
  Transmission Date: 20201103
  Serious: No
  Sender: FDA-Public Use
  Company Number: US-ACTELION-A-NJ2020-205911

PATIENT
  Age: 65 Year
  Sex: Male

DRUGS (8)
  1. UPTRAVI [Suspect]
     Active Substance: SELEXIPAG
     Indication: PULMONARY ARTERIAL HYPERTENSION
     Dosage: 800 MCG, BID
     Route: 048
     Dates: start: 20200423, end: 202006
  2. UPTRAVI [Suspect]
     Active Substance: SELEXIPAG
     Dosage: 1000 MCG, BID
     Route: 048
     Dates: start: 20200526, end: 20200529
  3. UPTRAVI [Suspect]
     Active Substance: SELEXIPAG
     Dosage: UNK
     Route: 048
  4. OPSUMIT [Suspect]
     Active Substance: MACITENTAN
     Indication: PULMONARY ARTERIAL HYPERTENSION
     Route: 048
  5. OXYGEN. [Concomitant]
     Active Substance: OXYGEN
     Dosage: 2.5 L
     Route: 045
  6. OXYGEN. [Concomitant]
     Active Substance: OXYGEN
     Dosage: 3.6 L
     Route: 045
  7. UPTRAVI [Suspect]
     Active Substance: SELEXIPAG
     Dosage: 1000 MCG, BID
     Route: 048
     Dates: start: 20200522, end: 202005
  8. UPTRAVI [Suspect]
     Active Substance: SELEXIPAG
     Dosage: 800MCG IN AM AND 1000MCG IN PM
     Route: 048
     Dates: start: 20200522, end: 20200526

REACTIONS (4)
  - Weight increased [Unknown]
  - Fluid overload [Unknown]
  - Oxygen consumption increased [Unknown]
  - Headache [Unknown]

NARRATIVE: CASE EVENT DATE: 2020
